FAERS Safety Report 21883891 (Version 1)
Quarter: 2023Q1

REPORT INFORMATION
  Report Type: Report from Study
  Country: US (occurrence: US)
  Receive Date: 20230119
  Receipt Date: 20230119
  Transmission Date: 20230417
  Serious: No
  Sender: FDA-Public Use
  Company Number: US-ABBVIE-4244008

PATIENT
  Sex: Female

DRUGS (1)
  1. HUMIRA [Suspect]
     Active Substance: ADALIMUMAB
     Indication: Crohn^s disease
     Route: 058
     Dates: start: 20221021

REACTIONS (4)
  - Injection site erythema [Recovering/Resolving]
  - Injection site bruising [Unknown]
  - Injection site warmth [Recovering/Resolving]
  - Injection site papule [Recovering/Resolving]
